FAERS Safety Report 7867910-4 (Version None)
Quarter: 2011Q4

REPORT INFORMATION
  Report Type: 
  Country: None (occurrence: None)
  Receive Date: 20111028
  Receipt Date: 20111018
  Transmission Date: 20120403
  Serious: Yes (Hospitalization, Other)
  Sender: FDA-Public Use
  Company Number: PHHY2011AU92123

PATIENT
  Sex: Female

DRUGS (1)
  1. VOXAM [Suspect]
     Dosage: UNK
     Route: 048

REACTIONS (2)
  - CHEST PAIN [None]
  - HYPERTENSION [None]
